FAERS Safety Report 21734048 (Version 1)
Quarter: 2022Q4

REPORT INFORMATION
  Report Type: Spontaneous
  Country: US (occurrence: US)
  Receive Date: 20221215
  Receipt Date: 20221215
  Transmission Date: 20230112
  Serious: No
  Sender: FDA-Public Use
  Company Number: US-SUN PHARMACEUTICAL INDUSTRIES LTD-2022R1-361227

PATIENT
  Age: 24 Year
  Sex: Female

DRUGS (1)
  1. WINLEVI [Suspect]
     Active Substance: CLASCOTERONE
     Indication: Acne
     Dosage: UNK UNK, BID
     Route: 061
     Dates: start: 20220525, end: 20220530

REACTIONS (5)
  - Product physical consistency issue [Unknown]
  - Product use complaint [Unknown]
  - Application site irritation [Unknown]
  - Therapy cessation [Unknown]
  - Application site pain [Unknown]

NARRATIVE: CASE EVENT DATE: 20220525
